FAERS Safety Report 18200776 (Version 26)
Quarter: 2025Q4

REPORT INFORMATION
  Report Type: Report from Study
  Country: US (occurrence: US)
  Receive Date: 20200827
  Receipt Date: 20251106
  Transmission Date: 20260118
  Serious: Yes (Hospitalization, Other)
  Sender: TAKEDA
  Company Number: US-SHIRE-US202027642

PATIENT
  Age: 3 Year
  Sex: Male

DRUGS (17)
  1. ADVATE [Suspect]
     Active Substance: ANTIHEMOPHILIC FACTOR, HUMAN RECOMBINANT
     Indication: Haemorrhage
     Dosage: 450 INTERNATIONAL UNIT
  2. ADVATE [Suspect]
     Active Substance: ANTIHEMOPHILIC FACTOR, HUMAN RECOMBINANT
     Dosage: 575 INTERNATIONAL UNIT
  3. ADVATE [Suspect]
     Active Substance: ANTIHEMOPHILIC FACTOR, HUMAN RECOMBINANT
     Dosage: 585 INTERNATIONAL UNIT
  4. ADVATE [Suspect]
     Active Substance: ANTIHEMOPHILIC FACTOR, HUMAN RECOMBINANT
     Dosage: 292 INTERNATIONAL UNIT
  5. ADVATE [Suspect]
     Active Substance: ANTIHEMOPHILIC FACTOR, HUMAN RECOMBINANT
     Dosage: 485 INTERNATIONAL UNIT
  6. ADVATE [Suspect]
     Active Substance: ANTIHEMOPHILIC FACTOR, HUMAN RECOMBINANT
     Dosage: 710 INTERNATIONAL UNIT
  7. ADVATE [Suspect]
     Active Substance: ANTIHEMOPHILIC FACTOR, HUMAN RECOMBINANT
     Dosage: 365 INTERNATIONAL UNIT
  8. ADVATE [Suspect]
     Active Substance: ANTIHEMOPHILIC FACTOR, HUMAN RECOMBINANT
     Dosage: 418 INTERNATIONAL UNIT
  9. ADVATE [Suspect]
     Active Substance: ANTIHEMOPHILIC FACTOR, HUMAN RECOMBINANT
     Dosage: 835 INTERNATIONAL UNIT
  10. ADVATE [Suspect]
     Active Substance: ANTIHEMOPHILIC FACTOR, HUMAN RECOMBINANT
     Dosage: 528 INTERNATIONAL UNIT
  11. ADVATE [Suspect]
     Active Substance: ANTIHEMOPHILIC FACTOR, HUMAN RECOMBINANT
     Dosage: 1055 INTERNATIONAL UNIT
  12. ADVATE [Suspect]
     Active Substance: ANTIHEMOPHILIC FACTOR, HUMAN RECOMBINANT
     Dosage: 573 INTERNATIONAL UNIT
  13. ADVATE [Suspect]
     Active Substance: ANTIHEMOPHILIC FACTOR, HUMAN RECOMBINANT
     Dosage: 1146 INTERNATIONAL UNIT
  14. ADVATE [Suspect]
     Active Substance: ANTIHEMOPHILIC FACTOR, HUMAN RECOMBINANT
     Dosage: 655 INTERNATIONAL UNIT
  15. ADVATE [Suspect]
     Active Substance: ANTIHEMOPHILIC FACTOR, HUMAN RECOMBINANT
     Dosage: 675 INTERNATIONAL UNIT
  16. ADVATE [Suspect]
     Active Substance: ANTIHEMOPHILIC FACTOR, HUMAN RECOMBINANT
     Dosage: 1350 INTERNATIONAL UNIT
  17. ADVATE [Suspect]
     Active Substance: ANTIHEMOPHILIC FACTOR, HUMAN RECOMBINANT
     Dosage: 785 INTERNATIONAL UNIT

REACTIONS (23)
  - Epilepsy [Unknown]
  - Haemarthrosis [Recovering/Resolving]
  - Seizure [Recovered/Resolved]
  - Oral blood blister [Recovered/Resolved]
  - Penile haemorrhage [Recovered/Resolved]
  - Haemorrhage [Recovered/Resolved]
  - Circulatory collapse [Unknown]
  - Muscle spasms [Unknown]
  - Mass [Not Recovered/Not Resolved]
  - Weight decreased [Recovered/Resolved]
  - Decreased appetite [Recovered/Resolved]
  - Head injury [Unknown]
  - Fall [Unknown]
  - Screaming [Unknown]
  - Movement disorder [Unknown]
  - Gait disturbance [Unknown]
  - Neck pain [Unknown]
  - Rhinorrhoea [Unknown]
  - Illness [Unknown]
  - Cough [Unknown]
  - Nasopharyngitis [Recovered/Resolved]
  - Post procedural complication [Unknown]
  - Fatigue [Unknown]

NARRATIVE: CASE EVENT DATE: 20200819
